FAERS Safety Report 8865401 (Version 1)
Quarter: 2012Q4

REPORT INFORMATION
  Report Type: 
  Country: US (occurrence: US)
  Receive Date: 20121024
  Receipt Date: 20121024
  Transmission Date: 20130627
  Serious: No
  Sender: FDA-Public Use
  Company Number: US-AMGEN-USASP2012002664

PATIENT
  Age: 62 Year
  Sex: Male

DRUGS (20)
  1. ENBREL [Suspect]
     Indication: PRODUCT USED FOR UNKNOWN INDICATION
     Dosage: 50 mg, qwk
  2. JANUVIA [Concomitant]
     Dosage: 25 mg, UNK
  3. MEDROL                             /00049601/ [Concomitant]
     Dosage: 2 mg, UNK
  4. DETROL [Concomitant]
     Dosage: 1 mg, UNK
  5. NEUROTIN                           /00949202/ [Concomitant]
     Dosage: 400 mg, UNK
  6. VICODIN [Concomitant]
     Dosage: UNK
  7. K-DUR [Concomitant]
     Dosage: 10 mEq, UNK
  8. OXYCODONE [Concomitant]
     Dosage: 10 mg, UNK
  9. ATENOLOL [Concomitant]
     Dosage: 25 mg, UNK
  10. GABAPENTIN [Concomitant]
     Dosage: 400 mg, UNK
  11. CEPHALEXIN                         /00145501/ [Concomitant]
     Dosage: UNK
  12. ASPIRIN [Concomitant]
     Dosage: 325 mg, UNK
  13. ISOSORB DINIT [Concomitant]
     Dosage: 30 mg, UNK
  14. VITAMIN C                          /00008001/ [Concomitant]
     Dosage: 500 mg, UNK
  15. HYDROCHLOROTH [Concomitant]
     Dosage: 12.5 mg, UNK
  16. MINOXIDIL [Concomitant]
     Dosage: 10 mg, UNK
  17. ISOPROTERENOL                      /00006301/ [Concomitant]
     Dosage: 0.2 UNK, UNK
  18. LOSARTAN POTASSIUM [Concomitant]
     Dosage: 25 mg, UNK
  19. ZETIA [Concomitant]
     Dosage: 10 mg, UNK
  20. GLUCOSAMINE + CHONDROITIN          /01430901/ [Concomitant]
     Dosage: UNK

REACTIONS (1)
  - Pain in extremity [Unknown]
